FAERS Safety Report 21911226 (Version 3)
Quarter: 2023Q1

REPORT INFORMATION
  Report Type: Report from Study
  Country: US (occurrence: US)
  Receive Date: 20230125
  Receipt Date: 20230306
  Transmission Date: 20230417
  Serious: Yes (Hospitalization)
  Sender: FDA-Public Use
  Company Number: US-JAZZ-2022-US-035723

PATIENT
  Age: 34 Year
  Sex: Female

DRUGS (4)
  1. XYWAV [Suspect]
     Active Substance: CALCIUM OXYBATE\MAGNESIUM OXYBATE\POTASSIUM OXYBATE\SODIUM OXYBATE
     Indication: Hypersomnia
     Dosage: 6 MILLILITER, QD
     Route: 048
  2. XYWAV [Suspect]
     Active Substance: CALCIUM OXYBATE\MAGNESIUM OXYBATE\POTASSIUM OXYBATE\SODIUM OXYBATE
     Dosage: TAKE 8 ML BY MOUTH AT BEDTIME
  3. XYWAV [Suspect]
     Active Substance: CALCIUM OXYBATE\MAGNESIUM OXYBATE\POTASSIUM OXYBATE\SODIUM OXYBATE
     Dosage: 8 GRAM, QD
  4. TESSALON [Concomitant]
     Active Substance: BENZONATATE
     Indication: Product used for unknown indication
     Dosage: 100 MG CAP
     Dates: start: 20221012

REACTIONS (12)
  - Hospitalisation [Unknown]
  - Pollakiuria [Unknown]
  - Bronchitis [Recovered/Resolved]
  - Abdominal discomfort [Unknown]
  - Sinusitis [Unknown]
  - Muscle spasms [Unknown]
  - Vomiting [Unknown]
  - Hepatic cyst [Unknown]
  - Urinary tract infection [Recovered/Resolved]
  - Pharyngitis streptococcal [Unknown]
  - Pre-existing condition improved [Unknown]
  - Product administration interrupted [Unknown]

NARRATIVE: CASE EVENT DATE: 20230114
